FAERS Safety Report 24785260 (Version 2)
Quarter: 2025Q1

REPORT INFORMATION
  Report Type: Report from Study
  Country: US (occurrence: US)
  Receive Date: 20241228
  Receipt Date: 20250203
  Transmission Date: 20250408
  Serious: Yes (Other)
  Sender: JOHNSON AND JOHNSON
  Company Number: US-JNJFOC-20241248604

PATIENT
  Sex: Female

DRUGS (19)
  1. STELARA [Suspect]
     Active Substance: USTEKINUMAB
     Indication: Proctitis ulcerative
     Route: 058
  2. STELARA [Suspect]
     Active Substance: USTEKINUMAB
     Route: 058
  3. CORTISONE ACETATE [Concomitant]
     Active Substance: CORTISONE ACETATE
  4. HUMALOG [Concomitant]
     Active Substance: INSULIN LISPRO
  5. BIOTIN [Concomitant]
     Active Substance: BIOTIN
  6. MELATONIN [Concomitant]
     Active Substance: MELATONIN
  7. POTASSIUM [Concomitant]
     Active Substance: POTASSIUM
  8. TYLENOL [Concomitant]
     Active Substance: ACETAMINOPHEN
  9. VITAMIN D3 [Concomitant]
     Active Substance: CHOLECALCIFEROL
  10. FENOFIBRATE [Concomitant]
     Active Substance: FENOFIBRATE
  11. ICOSAPENT [Concomitant]
     Active Substance: ICOSAPENT
  12. INVOKANA [Concomitant]
     Active Substance: CANAGLIFLOZIN
  13. LINZESS [Concomitant]
     Active Substance: LINACLOTIDE
  14. MOUNJARO [Concomitant]
     Active Substance: TIRZEPATIDE
  15. NORTRIPTYLINE [Concomitant]
     Active Substance: NORTRIPTYLINE
  16. PREGABALIN [Concomitant]
     Active Substance: PREGABALIN
  17. ROSUVASTATIN [Concomitant]
     Active Substance: ROSUVASTATIN
  18. SERTRALINE [Concomitant]
     Active Substance: SERTRALINE HYDROCHLORIDE
  19. TRAZODONE HCL [Concomitant]
     Active Substance: TRAZODONE HYDROCHLORIDE

REACTIONS (9)
  - Neuropathy peripheral [Unknown]
  - Haematochezia [Unknown]
  - Fatigue [Unknown]
  - Sinusitis [Unknown]
  - Arthralgia [Unknown]
  - Rash papular [Unknown]
  - Nail ridging [Unknown]
  - Drug ineffective [Unknown]
  - Hordeolum [Unknown]
